FAERS Safety Report 5493911-X (Version None)
Quarter: 2007Q4

REPORT INFORMATION
  Report Type: 
  Country: None (occurrence: None)
  Receive Date: 20071023
  Receipt Date: 20071011
  Transmission Date: 20080405
  Serious: Yes (Hospitalization, Other)
  Sender: FDA-Public Use
  Company Number: US-PFIZER INC-2007085743

PATIENT
  Sex: Female
  Weight: 66.7 kg

DRUGS (6)
  1. ALPRAZOLAM [Suspect]
     Indication: FEELING OF RELAXATION
  2. AMLODIPINE [Suspect]
  3. SYNTHROID [Suspect]
  4. TOPROL-XL [Concomitant]
  5. GLYBURIDE [Concomitant]
  6. ACETYLSALICYLIC ACID SRT [Concomitant]

REACTIONS (4)
  - CORONARY ARTERIAL STENT INSERTION [None]
  - COUGH [None]
  - NASOPHARYNGITIS [None]
  - SINUS DISORDER [None]
